FAERS Safety Report 12493761 (Version 1)
Quarter: 2016Q2

REPORT INFORMATION
  Report Type: Spontaneous
  Country: US (occurrence: US)
  Receive Date: 20160623
  Receipt Date: 20160623
  Transmission Date: 20160815
  Serious: No
  Sender: FDA-Public Use
  Company Number: ALCN2016US004345

PATIENT
  Age: 71 Year
  Sex: Female

DRUGS (1)
  1. TRAVATAN Z [Suspect]
     Active Substance: TRAVOPROST
     Indication: INTRAOCULAR PRESSURE INCREASED
     Dosage: 1 GTT, QD
     Route: 047
     Dates: start: 20160602, end: 20160613

REACTIONS (4)
  - Ocular hyperaemia [Recovered/Resolved]
  - Eye pain [Recovered/Resolved]
  - Abnormal sensation in eye [Recovered/Resolved]
  - Eye pruritus [Recovered/Resolved]

NARRATIVE: CASE EVENT DATE: 20160603
